FAERS Safety Report 24458733 (Version 1)
Quarter: 2024Q4

REPORT INFORMATION
  Report Type: Spontaneous
  Country: CA (occurrence: CA)
  Receive Date: 20241018
  Receipt Date: 20241018
  Transmission Date: 20250114
  Serious: No
  Sender: ROCHE
  Company Number: CA-ROCHE-3523426

PATIENT
  Age: 73 Year
  Sex: Female

DRUGS (1)
  1. RITUXIMAB [Suspect]
     Active Substance: RITUXIMAB
     Indication: Polymyositis
     Route: 041

REACTIONS (4)
  - Myopathy [Unknown]
  - Off label use [Unknown]
  - Therapy cessation [Unknown]
  - Treatment failure [Unknown]
